FAERS Safety Report 8795782 (Version 3)
Quarter: 2014Q2

REPORT INFORMATION
  Report Type: Spontaneous
  Country: US (occurrence: US)
  Receive Date: 20120919
  Receipt Date: 20131017
  Transmission Date: 20141212
  Serious: Yes (Other)
  Sender: FDA-Public Use
  Company Number: US-PFIZER INC-2012224171

PATIENT
  Age: 41 Year
  Sex: Female

DRUGS (7)
  1. MORPHINE SULFATE [Suspect]
     Indication: PAIN
     Dosage: UNK
  2. GABAPENTIN [Concomitant]
     Indication: PAIN
     Dosage: UNK
  3. BUPIVACAINE HYDROCHLORIDE [Concomitant]
     Indication: PAIN
     Dosage: 7 ML OF 0.25%
  4. LIDOCAINE HYDROCHLORIDE [Concomitant]
     Indication: PAIN
     Dosage: UNK
     Route: 042
  5. AMITRIPTYLINE [Concomitant]
     Indication: PAIN
     Dosage: UNK
  6. CALCITONIN [Concomitant]
     Indication: PAIN
  7. LIDOCAINE [Concomitant]
     Indication: PAIN
     Route: 061

REACTIONS (2)
  - Meningitis chemical [Unknown]
  - Drug ineffective [Recovered/Resolved]
